FAERS Safety Report 5430086-7 (Version None)
Quarter: 2007Q3

REPORT INFORMATION
  Report Type: 
  Country: None (occurrence: None)
  Receive Date: 20070829
  Receipt Date: 20070822
  Transmission Date: 20080115
  Serious: Yes (Other)
  Sender: FDA-Public Use
  Company Number: JP-PFIZER INC-2007070109

PATIENT
  Age: 16 Year
  Sex: Male

DRUGS (7)
  1. ATARAX [Suspect]
     Indication: MALAISE
     Dosage: DAILY DOSE:25MG
     Route: 042
  2. LORAZEPAM [Concomitant]
     Route: 048
  3. CARBENIN [Concomitant]
     Route: 042
  4. MINOCYCLINE HCL [Concomitant]
     Route: 042
  5. MICAFUNGIN [Concomitant]
     Route: 042
  6. AMIKACIN [Concomitant]
     Route: 065
  7. GRAN [Concomitant]

REACTIONS (1)
  - DYSARTHRIA [None]
